FAERS Safety Report 13492367 (Version 2)
Quarter: 2017Q2

REPORT INFORMATION
  Report Type: Spontaneous
  Country: US (occurrence: US)
  Receive Date: 20170427
  Receipt Date: 20170506
  Transmission Date: 20170830
  Serious: Yes (Hospitalization, Other)
  Sender: FDA-Public Use
  Company Number: US-BRISTOL-MYERS SQUIBB COMPANY-BMS-2017-036410

PATIENT
  Sex: Male

DRUGS (1)
  1. LYSODREN [Suspect]
     Active Substance: MITOTANE
     Indication: METASTASES TO ADRENALS
     Dosage: UNK
     Route: 065
     Dates: start: 201312, end: 201404

REACTIONS (11)
  - Diabetes mellitus inadequate control [Unknown]
  - Diarrhoea [Unknown]
  - Dyspnoea exertional [Unknown]
  - Malignant neoplasm progression [Unknown]
  - Nausea [Unknown]
  - Liver function test increased [Unknown]
  - Vomiting [Unknown]
  - Fatigue [Unknown]
  - Drug intolerance [Unknown]
  - Tachycardia [Unknown]
  - Back pain [Unknown]
